FAERS Safety Report 7282676-7 (Version None)
Quarter: 2011Q1

REPORT INFORMATION
  Report Type: 
  Country: None (occurrence: None)
  Receive Date: 20110209
  Receipt Date: 20110128
  Transmission Date: 20110831
  Serious: Yes (Hospitalization)
  Sender: FDA-Public Use
  Company Number: US-JNJFOC-20101202449

PATIENT
  Sex: Male
  Weight: 68.2 kg

DRUGS (15)
  1. ASPIRIN [Concomitant]
     Route: 065
  2. FLAX SEED OIL [Concomitant]
     Route: 065
  3. VITAMIN B1 TAB [Concomitant]
     Route: 065
  4. VITAMIN E (TOCOPHERYL ACETATE) [Concomitant]
     Route: 065
  5. CELEBREX [Concomitant]
     Route: 065
  6. MIRALAX [Concomitant]
     Route: 065
  7. DOXORUBICIN HCL [Suspect]
     Indication: MULTIPLE MYELOMA
     Dosage: CURRENTLY IN 23RD CYCLE
     Route: 042
  8. ZOCOR [Concomitant]
     Route: 065
  9. URSODIOL [Concomitant]
     Route: 065
  10. VITAMIN B-12 [Concomitant]
     Route: 065
  11. VITAMIN B6 [Concomitant]
     Route: 065
  12. TYLENOL-500 [Concomitant]
     Route: 065
  13. ACYCLOVIR [Concomitant]
     Route: 065
  14. FOLIC ACID [Concomitant]
     Route: 065
  15. PROTONIX [Concomitant]
     Route: 065

REACTIONS (1)
  - CHOLECYSTITIS [None]
